FAERS Safety Report 16457657 (Version 3)
Quarter: 2020Q1

REPORT INFORMATION
  Report Type: Spontaneous
  Country: GB (occurrence: GB)
  Receive Date: 20190620
  Receipt Date: 20200310
  Transmission Date: 20200409
  Serious: Yes (Death, Hospitalization, Other)
  Sender: FDA-Public Use
  Company Number: GB-PFIZER INC-2019261312

PATIENT
  Age: 77 Year
  Sex: Male
  Weight: 65 kg

DRUGS (10)
  1. RIVAROXABAN [Concomitant]
     Active Substance: RIVAROXABAN
     Dosage: UNK
  2. EPLERENONE. [Concomitant]
     Active Substance: EPLERENONE
     Dosage: UNK
     Route: 065
  3. BISOPROLOL [Concomitant]
     Active Substance: BISOPROLOL
     Dosage: UNK
  4. AMIODARONE [Concomitant]
     Active Substance: AMIODARONE
     Dosage: UNK
  5. AMIODARONE HCL [Suspect]
     Active Substance: AMIODARONE HYDROCHLORIDE
     Indication: ATRIAL FIBRILLATION
     Dosage: 200 MG, UNK
     Route: 048
     Dates: start: 20190117, end: 20190130
  6. BUMETANIDE. [Concomitant]
     Active Substance: BUMETANIDE
     Dosage: UNK
  7. SIMVASTATIN. [Concomitant]
     Active Substance: SIMVASTATIN
     Dosage: UNK
  8. ISOSORBIDE MONONITRATE. [Concomitant]
     Active Substance: ISOSORBIDE MONONITRATE
     Dosage: UNK
  9. ALLOPURINOL. [Concomitant]
     Active Substance: ALLOPURINOL
     Dosage: UNK
  10. RAMIPRIL. [Concomitant]
     Active Substance: RAMIPRIL
     Dosage: UNK

REACTIONS (8)
  - Chills [Fatal]
  - Liver function test abnormal [Fatal]
  - Acute kidney injury [Fatal]
  - Acute lung injury [Fatal]
  - Cough [Fatal]
  - Respiratory failure [Fatal]
  - Dyspnoea [Fatal]
  - Pulmonary fibrosis [Fatal]

NARRATIVE: CASE EVENT DATE: 2019
